FAERS Safety Report 10023577 (Version 1)
Quarter: 2014Q1

REPORT INFORMATION
  Report Type: Spontaneous
  Country: CA (occurrence: None)
  Receive Date: 20140107
  Receipt Date: 20140107
  Transmission Date: 20141002
  Serious: No
  Sender: FDA-Public Use
  Company Number: CA-145123

PATIENT
  Sex: Male
  Weight: 66.5 kg

DRUGS (3)
  1. WINRHO SDF LIQUID [Suspect]
     Indication: IMMUNE THROMBOCYTOPENIC PURPURA
     Route: 042
     Dates: start: 20090428, end: 20090428
  2. BENADRYL [Concomitant]
  3. TYLENOL [Concomitant]

REACTIONS (5)
  - Chills [None]
  - Coombs direct test positive [None]
  - Haemoglobin increased [None]
  - Headache [None]
  - Hypertension [None]
